FAERS Safety Report 9680382 (Version 1)
Quarter: 2013Q4

REPORT INFORMATION
  Report Type: Spontaneous
  Country: IN (occurrence: IN)
  Receive Date: 20131111
  Receipt Date: 20131111
  Transmission Date: 20140711
  Serious: Yes (Other)
  Sender: FDA-Public Use
  Company Number: IN-SUN PHARMACEUTICAL INDUSTRIES LTD-2013SUN04988

PATIENT
  Age: 35 Year
  Sex: Male

DRUGS (6)
  1. LITHIUM [Suspect]
     Indication: OBSESSIVE-COMPULSIVE DISORDER
     Dosage: 800 MG PER DAY
     Route: 065
  2. RISPERIDONE ORALLY DISINTEGARTED TABLETS, USP 2 MG [Suspect]
     Indication: OBSESSIVE-COMPULSIVE DISORDER
     Dosage: 2 MG PER DAY
     Route: 065
  3. SERTRALINE HCL TABS 100MG [Suspect]
     Indication: OBSESSIVE-COMPULSIVE DISORDER
     Dosage: 200 MG PER DAY
     Route: 065
  4. SERTRALINE HCL TABS 100MG [Suspect]
     Dosage: 400 MG PER DAY
     Route: 065
  5. SERTRALINE HCL TABS 100MG [Suspect]
     Dosage: 200 MG PER DAY
     Route: 065
  6. CLOMIPRAMINE [Suspect]
     Indication: OBSESSIVE-COMPULSIVE DISORDER
     Dosage: 225 MG PER DAY
     Route: 065

REACTIONS (3)
  - Serotonin syndrome [Recovered/Resolved]
  - Hallucination, auditory [Recovered/Resolved]
  - Overdose [Unknown]
